FAERS Safety Report 16055797 (Version 1)
Quarter: 2019Q1

REPORT INFORMATION
  Report Type: Report from Study
  Country: RO (occurrence: RO)
  Receive Date: 20190311
  Receipt Date: 20190311
  Transmission Date: 20190418
  Serious: Yes (Other)
  Sender: FDA-Public Use
  Company Number: RO-ROCHE-2077910

PATIENT
  Sex: Female
  Weight: 75 kg

DRUGS (2)
  1. ROACTEMRA [Suspect]
     Active Substance: TOCILIZUMAB
     Indication: RHEUMATOID ARTHRITIS
     Route: 058
     Dates: start: 201710
  2. METHOTREXATE. [Concomitant]
     Active Substance: METHOTREXATE
     Indication: RHEUMATOID ARTHRITIS

REACTIONS (9)
  - Deep vein thrombosis [Unknown]
  - Malaise [Not Recovered/Not Resolved]
  - Thrombophlebitis [Unknown]
  - Claustrophobia [Unknown]
  - Anti-cyclic citrullinated peptide antibody positive [Unknown]
  - Foot fracture [Unknown]
  - Gait disturbance [Unknown]
  - Ligament sprain [Unknown]
  - Motion sickness [Unknown]

NARRATIVE: CASE EVENT DATE: 2018
